FAERS Safety Report 22620992 (Version 1)
Quarter: 2023Q2

REPORT INFORMATION
  Report Type: Spontaneous
  Country: US (occurrence: US)
  Receive Date: 20230620
  Receipt Date: 20230620
  Transmission Date: 20230721
  Serious: Yes (Hospitalization)
  Sender: FDA-Public Use
  Company Number: US-JNJFOC-20230623281

PATIENT
  Age: 56 Year
  Sex: Male

DRUGS (3)
  1. HALDOL [Suspect]
     Active Substance: HALOPERIDOL
     Indication: Product used for unknown indication
     Route: 065
  2. INGREZZA [Suspect]
     Active Substance: VALBENAZINE
     Indication: Tardive dyskinesia
     Route: 048
     Dates: start: 20220929
  3. INGREZZA [Suspect]
     Active Substance: VALBENAZINE
     Indication: Tremor
     Route: 048
     Dates: start: 20221003

REACTIONS (4)
  - Fall [Recovered/Resolved]
  - General physical health deterioration [Not Recovered/Not Resolved]
  - Chromaturia [Unknown]
  - Incorrect dose administered [Unknown]

NARRATIVE: CASE EVENT DATE: 20221013
